FAERS Safety Report 5057963-3 (Version None)
Quarter: 2006Q3

REPORT INFORMATION
  Report Type: 
  Country: None (occurrence: None)
  Receive Date: 20060721
  Receipt Date: 20060424
  Transmission Date: 20061208
  Serious: No
  Sender: FDA-Public Use
  Company Number: US-GLAXOSMITHKLINE-A0603011A

PATIENT
  Age: 28 Year
  Sex: Male

DRUGS (4)
  1. AVANDIA [Suspect]
     Dosage: 8MG PER DAY
     Route: 048
     Dates: start: 20060410
  2. METFORMIN [Suspect]
     Route: 065
     Dates: start: 20060410
  3. BENICAR [Concomitant]
  4. PRANDIN [Concomitant]

REACTIONS (1)
  - COUGH [None]
